FAERS Safety Report 7558028-9 (Version None)
Quarter: 2011Q2

REPORT INFORMATION
  Report Type: 
  Country: None (occurrence: None)
  Receive Date: 20110620
  Receipt Date: 20110607
  Transmission Date: 20111010
  Serious: Yes (Other)
  Sender: FDA-Public Use
  Company Number: PHHY2011IN49807

PATIENT
  Age: 28 Year
  Sex: Male

DRUGS (5)
  1. VALPROATE SODIUM [Concomitant]
  2. CLOZAPINE [Suspect]
     Dosage: 300 MG, DAILY
  3. CARBAMAZEPINE [Concomitant]
  4. LITHIUM CARBONATE [Concomitant]
  5. LAXATIVES [Concomitant]

REACTIONS (4)
  - MANIA [None]
  - CONSTIPATION [None]
  - SALIVARY HYPERSECRETION [None]
  - TACHYCARDIA [None]
